FAERS Safety Report 19985159 (Version 1)
Quarter: 2021Q4

REPORT INFORMATION
  Report Type: Spontaneous
  Country: KW (occurrence: KW)
  Receive Date: 20211022
  Receipt Date: 20211022
  Transmission Date: 20220303
  Serious: Yes (Hospitalization, Other)
  Sender: FDA-Public Use
  Company Number: KW-TEVA-2021-KW-1970187

PATIENT
  Age: 9 Year
  Sex: Male

DRUGS (2)
  1. WILZIN [Suspect]
     Active Substance: ZINC ACETATE
     Indication: Hepato-lenticular degeneration
     Dosage: 75 MILLIGRAM DAILY;
     Route: 048
     Dates: start: 20210801
  2. SYPRINE [Concomitant]
     Active Substance: TRIENTINE HYDROCHLORIDE
     Indication: Hepato-lenticular degeneration
     Dosage: 500 MILLIGRAM DAILY;
     Route: 048
     Dates: start: 20210801

REACTIONS (6)
  - Haematochezia [Recovered/Resolved]
  - Haemolytic anaemia [Recovered/Resolved]
  - Jaundice acholuric [Unknown]
  - Chromaturia [Recovered/Resolved]
  - Abdominal discomfort [Recovered/Resolved]
  - Drug intolerance [Unknown]

NARRATIVE: CASE EVENT DATE: 20210101
